FAERS Safety Report 25891042 (Version 1)
Quarter: 2025Q4

REPORT INFORMATION
  Report Type: Spontaneous
  Country: EU (occurrence: EU)
  Receive Date: 20251007
  Receipt Date: 20251007
  Transmission Date: 20260117
  Serious: Yes (Life-Threatening)
  Sender: FRESENIUS KABI
  Company Number: None

PATIENT
  Age: 85 Year
  Sex: Male

DRUGS (2)
  1. FLUCONAZOLE [Suspect]
     Active Substance: FLUCONAZOLE
     Indication: Otitis externa
     Route: 042
     Dates: start: 20250722, end: 20250807
  2. CEFTAZIDIME [Suspect]
     Active Substance: CEFTAZIDIME
     Indication: Otitis externa
     Route: 042
     Dates: start: 20250722, end: 20250807

REACTIONS (1)
  - Symmetrical drug-related intertriginous and flexural exanthema [Recovered/Resolved]

NARRATIVE: CASE EVENT DATE: 20250801
